FAERS Safety Report 6544780-8 (Version None)
Quarter: 2010Q1

REPORT INFORMATION
  Report Type: 
  Country: None (occurrence: None)
  Receive Date: 20100121
  Receipt Date: 20100111
  Transmission Date: 20100710
  Serious: Yes (Other)
  Sender: FDA-Public Use
  Company Number: US-BAYER-201010962NA

PATIENT

DRUGS (2)
  1. MAGNEVIST [Suspect]
     Indication: NUCLEAR MAGNETIC RESONANCE IMAGING
     Dates: start: 20060101, end: 20060101
  2. PAIN MANAGEMENT [Concomitant]

REACTIONS (3)
  - JOINT RANGE OF MOTION DECREASED [None]
  - PAIN [None]
  - SPINAL DISORDER [None]
